FAERS Safety Report 5133252-3 (Version None)
Quarter: 2006Q4

REPORT INFORMATION
  Report Type: 
  Country: None (occurrence: None)
  Receive Date: 20061018
  Receipt Date: 20061005
  Transmission Date: 20070319
  Serious: Yes (Hospitalization)
  Sender: FDA-Public Use
  Company Number: 2006012902

PATIENT
  Age: 52 Year
  Sex: Male
  Weight: 69 kg

DRUGS (1)
  1. SUTENT [Suspect]
     Indication: METASTATIC RENAL CELL CARCINOMA
     Dosage: 50 MG (50 MG, 1 IN 1 D), ORAL
     Route: 048
     Dates: start: 20051108

REACTIONS (4)
  - DYSURIA [None]
  - EYELID OEDEMA [None]
  - GENERAL PHYSICAL HEALTH DETERIORATION [None]
  - STREPTOCOCCAL SEPSIS [None]
